FAERS Safety Report 25750236 (Version 1)
Quarter: 2025Q3

REPORT INFORMATION
  Report Type: Spontaneous
  Country: EU (occurrence: EU)
  Receive Date: 20250902
  Receipt Date: 20250902
  Transmission Date: 20251020
  Serious: Yes (Other)
  Sender: BAYER HEALTHCARE PHARMACEUTICALS INC.
  Company Number: EU-BAYER-2025A113647

PATIENT
  Sex: Male

DRUGS (2)
  1. ADEMPAS [Suspect]
     Active Substance: RIOCIGUAT
     Indication: Pulmonary hypertension
     Dates: start: 20230801
  2. ADEMPAS [Suspect]
     Active Substance: RIOCIGUAT
     Indication: Pulmonary hypertension
     Dosage: 2.5 MG, TID
     Dates: start: 202309

REACTIONS (6)
  - Pulmonary angioplasty [Recovered/Resolved]
  - Pulmonary angioplasty [Recovered/Resolved]
  - Pulmonary angioplasty [Recovered/Resolved]
  - Pulmonary angioplasty [Recovered/Resolved]
  - Pulmonary angioplasty [Recovered/Resolved]
  - Pulmonary angioplasty [Recovered/Resolved]

NARRATIVE: CASE EVENT DATE: 20240401
